FAERS Safety Report 9919251 (Version 1)
Quarter: 2014Q1

REPORT INFORMATION
  Report Type: Spontaneous
  Country: US (occurrence: US)
  Receive Date: 20140224
  Receipt Date: 20140224
  Transmission Date: 20141002
  Serious: Yes (Hospitalization)
  Sender: FDA-Public Use
  Company Number: US-JNJFOC-20140210230

PATIENT
  Age: 18 Year
  Sex: Female

DRUGS (1)
  1. ORTHO EVRA [Suspect]
     Indication: CONTRACEPTION
     Route: 062
     Dates: start: 20131202

REACTIONS (2)
  - Meningitis [Recovered/Resolved]
  - Inappropriate schedule of drug administration [Recovered/Resolved]
